FAERS Safety Report 17979643 (Version 3)
Quarter: 2020Q3

REPORT INFORMATION
  Report Type: Spontaneous
  Country: DE (occurrence: DE)
  Receive Date: 20200703
  Receipt Date: 20200904
  Transmission Date: 20201103
  Serious: Yes (Death, Other)
  Sender: FDA-Public Use
  Company Number: DE-BRISTOL-MYERS SQUIBB COMPANY-BMS-2020-052822

PATIENT
  Age: 80 Year
  Sex: Female

DRUGS (1)
  1. NIVOLUMAB [Suspect]
     Active Substance: NIVOLUMAB
     Indication: GINGIVAL CANCER
     Dosage: UNK
     Route: 065
     Dates: start: 201907

REACTIONS (3)
  - Ill-defined disorder [Fatal]
  - Condition aggravated [Unknown]
  - Off label use [Unknown]
